FAERS Safety Report 15391274 (Version 3)
Quarter: 2018Q3

REPORT INFORMATION
  Report Type: Spontaneous
  Country: US (occurrence: US)
  Receive Date: 20180917
  Receipt Date: 20180927
  Transmission Date: 20181010
  Serious: No
  Sender: FDA-Public Use
  Company Number: US-GLAXOSMITHKLINE-US2018GSK162066

PATIENT
  Sex: Female

DRUGS (2)
  1. SUMATRIPTAN (SUMATRIPTAN SUCCINATE) SOLUTION FOR INJECTION IN PRE?FILL [Suspect]
     Active Substance: SUMATRIPTAN
     Indication: PRODUCT USED FOR UNKNOWN INDICATION
     Dosage: 6 MG, PRN
  2. SUMATRIPTAN (SUMATRIPTAN SUCCINATE) SOLUTION FOR INJECTION IN PRE?FILL [Suspect]
     Active Substance: SUMATRIPTAN
     Dosage: 6 MG, UNK

REACTIONS (4)
  - Device malfunction [Unknown]
  - Device leakage [Unknown]
  - Product quality issue [Unknown]
  - Expired product administered [Unknown]
